FAERS Safety Report 5151657-1 (Version None)
Quarter: 2006Q4

REPORT INFORMATION
  Report Type: 
  Country: None (occurrence: None)
  Receive Date: 20061115
  Receipt Date: 20061103
  Transmission Date: 20070319
  Serious: Yes (Life-Threatening, Hospitalization, Disabling)
  Sender: FDA-Public Use
  Company Number: DE-ROCHE-470170

PATIENT
  Age: 29 Year
  Sex: Male
  Weight: 75 kg

DRUGS (1)
  1. PEGASYS [Suspect]
     Dosage: FORM REPORTED AS INJECTABLE SOLUTION.
     Route: 065
     Dates: start: 20050815, end: 20060915

REACTIONS (7)
  - HAEMOPTYSIS [None]
  - LEUKOPENIA [None]
  - LUNG INFECTION [None]
  - PERICARDIAL EFFUSION [None]
  - PULMONARY HYPERTENSION [None]
  - THROMBOCYTOPENIA [None]
  - VIRAL LOAD INCREASED [None]
